FAERS Safety Report 10270312 (Version 1)
Quarter: 2014Q2

REPORT INFORMATION
  Report Type: Report from Study
  Country: US (occurrence: None)
  Receive Date: 20140626
  Receipt Date: 20140626
  Transmission Date: 20141212
  Serious: Yes (Hospitalization, Other)
  Sender: FDA-Public Use
  Company Number: 2406820

PATIENT
  Age: 68 Year
  Sex: Male

DRUGS (2)
  1. VINCRISTINE SULFATE INJECTION, USP, 1MG/ML (VINCRISTINE SULFATE) [Suspect]
     Indication: PLASMA CELL MYELOMA
     Dates: start: 20131115, end: 20131115
  2. DOXORUBICIN HCL [Suspect]
     Indication: PLASMA CELL MYELOMA
     Route: 042
     Dates: start: 20131115, end: 20131115

REACTIONS (2)
  - Pneumonia [None]
  - Atrial flutter [None]
